FAERS Safety Report 9105313 (Version 1)
Quarter: 2013Q1

REPORT INFORMATION
  Report Type: Spontaneous
  Country: US (occurrence: US)
  Receive Date: 20130220
  Receipt Date: 20130220
  Transmission Date: 20140127
  Serious: Yes (Other)
  Sender: FDA-Public Use
  Company Number: US-CELGENEUS-163-21880-13021525

PATIENT
  Sex: Male

DRUGS (4)
  1. REVLIMID [Suspect]
     Indication: PLASMA CELL MYELOMA
     Dosage: 10 MILLIGRAM
     Route: 048
     Dates: start: 20120118
  2. CLARITIN [Concomitant]
     Indication: DERMATITIS
     Route: 065
  3. ZYRTEC [Concomitant]
     Indication: DERMATITIS
     Route: 065
  4. PREDNISONE [Concomitant]
     Indication: DERMATITIS
     Route: 065

REACTIONS (2)
  - Diabetes mellitus [Unknown]
  - Rash [Unknown]
